FAERS Safety Report 4369551-2 (Version None)
Quarter: 2004Q2

REPORT INFORMATION
  Report Type: 
  Country: None (occurrence: None)
  Receive Date: 20040603
  Receipt Date: 20040525
  Transmission Date: 20050107
  Serious: Yes (Hospitalization)
  Sender: FDA-Public Use
  Company Number: PHBS2004GB06994

PATIENT
  Age: 60 Year
  Sex: Male

DRUGS (11)
  1. CYCLOSPORINE [Suspect]
     Indication: RENAL TRANSPLANT
     Dosage: 8 MG/KG/D
     Route: 065
  2. METHYLPREDNISOLONE [Concomitant]
     Route: 042
  3. METHYLPREDNISOLONE [Concomitant]
     Dosage: 500 MG/D
     Route: 042
  4. PREDNISOLONE [Concomitant]
     Dosage: 20 MG/D
  5. PREDNISOLONE [Concomitant]
     Dosage: 80 MG/D
  6. MYCOPHENOLATE MOFETIL [Concomitant]
     Dosage: 2 G/D
  7. ASPIRIN [Concomitant]
  8. BISOPROLOL [Concomitant]
  9. RAMIPRIL [Concomitant]
  10. DOXAZOSIN [Concomitant]
  11. OMEPRAZOLE [Concomitant]

REACTIONS (13)
  - ASPARTATE AMINOTRANSFERASE INCREASED [None]
  - ATRIAL FIBRILLATION [None]
  - BLOOD CREATINE PHOSPHOKINASE INCREASED [None]
  - BLOOD CREATINE PHOSPHOKINASE MB INCREASED [None]
  - BLOOD LACTATE DEHYDROGENASE INCREASED [None]
  - BLOOD THYROID STIMULATING HORMONE DECREASED [None]
  - CREATININE RENAL CLEARANCE DECREASED [None]
  - MALAISE [None]
  - MUSCULAR WEAKNESS [None]
  - MYALGIA [None]
  - MYOGLOBINURIA [None]
  - POLYMYOSITIS [None]
  - RENAL IMPAIRMENT [None]
